FAERS Safety Report 6728210-9 (Version None)
Quarter: 2010Q2

REPORT INFORMATION
  Report Type: 
  Country: None (occurrence: None)
  Receive Date: 20100517
  Receipt Date: 20100513
  Transmission Date: 20101027
  Serious: Yes (Disabling)
  Sender: FDA-Public Use
  Company Number: D0067598A

PATIENT
  Sex: Female
  Weight: 55 kg

DRUGS (3)
  1. TYVERB [Suspect]
     Indication: BREAST CANCER
     Dosage: 250MG FIVE TIMES PER DAY
     Route: 048
     Dates: start: 20071217, end: 20100208
  2. XELODA [Suspect]
     Indication: BREAST CANCER
     Dosage: 1000MG TWICE PER DAY
     Route: 065
     Dates: start: 20071217, end: 20100208
  3. ZOMETA [Concomitant]
     Dosage: 4MG MONTHLY
     Route: 065
     Dates: start: 20040923, end: 20100511

REACTIONS (2)
  - ENOPHTHALMOS [None]
  - LIPOATROPHY [None]
